FAERS Safety Report 11247572 (Version 2)
Quarter: 2015Q3

REPORT INFORMATION
  Report Type: Spontaneous
  Country: US (occurrence: US)
  Receive Date: 20150708
  Receipt Date: 20150727
  Transmission Date: 20151125
  Serious: Yes (Other)
  Sender: FDA-Public Use
  Company Number: US-SA-2015SA096225

PATIENT
  Age: 57 Year
  Sex: Female

DRUGS (2)
  1. LANTUS SOLOSTAR [Suspect]
     Active Substance: INSULIN GLARGINE
     Dosage: DOSE:45 UNIT(S)
     Route: 065
     Dates: start: 20150611
  2. SOLOSTAR [Concomitant]
     Active Substance: DEVICE
     Dates: start: 20150611

REACTIONS (3)
  - Injection site erythema [Unknown]
  - Cellulitis [Recovering/Resolving]
  - Injection site inflammation [Unknown]
